FAERS Safety Report 6206217-8 (Version None)
Quarter: 2009Q2

REPORT INFORMATION
  Report Type: 
  Country: None (occurrence: None)
  Receive Date: 20090526
  Receipt Date: 20090518
  Transmission Date: 20091009
  Serious: Yes (Hospitalization)
  Sender: FDA-Public Use
  Company Number: TPA2009A01074

PATIENT
  Age: 59 Year
  Sex: Male

DRUGS (4)
  1. PIOGLITAZONE HCL [Suspect]
     Indication: TYPE 2 DIABETES MELLITUS
     Dosage: 30 MG, UNKNOWN, PER ORAL
     Route: 048
     Dates: start: 20090210, end: 20090325
  2. DAPAGLIFLOZIN (ALL OTHER THERAPEUTIC PRODUCTS) [Suspect]
     Indication: TYPE 2 DIABETES MELLITUS
     Dosage: 5 MG, PER ORAL
     Route: 048
     Dates: start: 20061118, end: 20090410
  3. METFORMIN HCL XR (METFORMIN) [Suspect]
     Indication: DIABETES MELLITUS
     Dosage: 4 IN 1 D, PER ORAL
     Route: 048
     Dates: start: 20081208, end: 20090325
  4. PLACEBO [Suspect]
     Indication: TYPE 2 DIABETES MELLITUS
     Dosage: PER ORAL
     Route: 048

REACTIONS (9)
  - ARTERIOSCLEROSIS [None]
  - CELLULITIS [None]
  - DIABETES MELLITUS INADEQUATE CONTROL [None]
  - GANGRENE [None]
  - INAPPROPRIATE SCHEDULE OF DRUG ADMINISTRATION [None]
  - PERIPHERAL ARTERIAL OCCLUSIVE DISEASE [None]
  - PULSE ABNORMAL [None]
  - PURULENCE [None]
  - VASCULAR CALCIFICATION [None]
